FAERS Safety Report 17502978 (Version 5)
Quarter: 2021Q2

REPORT INFORMATION
  Report Type: Report from Study
  Country: PL (occurrence: PL)
  Receive Date: 20200305
  Receipt Date: 20210624
  Transmission Date: 20210716
  Serious: Yes (Hospitalization, Other)
  Sender: FDA-Public Use
  Company Number: PL-ASTELLAS-2020US007347

PATIENT
  Age: 56 Year
  Sex: Male

DRUGS (9)
  1. PREDNISONE. [Concomitant]
     Active Substance: PREDNISONE
     Dosage: 7.5 UNKNOWN UNITS, TOTAL DAILY DOSE
     Route: 065
     Dates: start: 20190627, end: 20190819
  2. PREDNISONE. [Concomitant]
     Active Substance: PREDNISONE
     Dosage: 7.5 UNKNOWN UNITS, TOTAL DAILY DOSE
     Route: 065
     Dates: start: 20201211
  3. PREDNISONE. [Concomitant]
     Active Substance: PREDNISONE
     Indication: IMMUNOSUPPRESSION
     Dosage: 5 UNKNOWN UNITS, TOTAL DAILY DOSE
     Route: 065
     Dates: start: 20120726, end: 20190424
  4. PREDNISONE. [Concomitant]
     Active Substance: PREDNISONE
     Dosage: 5 UNKNOWN UNITS, TOTAL DAILY DOSE
     Route: 065
     Dates: start: 20190820, end: 20200916
  5. TACROLIMUS. [Suspect]
     Active Substance: TACROLIMUS
     Indication: IMMUNOSUPPRESSION
     Route: 048
     Dates: start: 20190720
  6. PREDNISONE. [Concomitant]
     Active Substance: PREDNISONE
     Dosage: 10 UNKNOWN UNITS, TOTAL DAILY DOSE
     Route: 065
     Dates: start: 20190425, end: 20190626
  7. PREDNISONE. [Concomitant]
     Active Substance: PREDNISONE
     Dosage: 10 UNKNOWN UNITS, TOTAL DAILY DOSE
     Route: 065
     Dates: start: 20200917, end: 20201210
  8. TACROLIMUS. [Suspect]
     Active Substance: TACROLIMUS
     Route: 048
     Dates: start: 20200825
  9. MYCOPHENOLATE SODIUM [Concomitant]
     Active Substance: MYCOPHENOLATE SODIUM
     Indication: IMMUNOSUPPRESSION
     Dosage: 720 UNKNOWN UNITS, TOTAL DAILY DOSE
     Route: 065
     Dates: start: 20160321, end: 20201007

REACTIONS (2)
  - Clear cell renal cell carcinoma [Recovered/Resolved]
  - Renal cyst [Recovered/Resolved with Sequelae]

NARRATIVE: CASE EVENT DATE: 20200217
